FAERS Safety Report 7105265 (Version 12)
Quarter: 2012Q4

REPORT INFORMATION
  Report Type: 
  Country: SE (occurrence: SE)
  Receive Date: 20090904
  Receipt Date: 20121001
  Transmission Date: 20130627
  Serious: Yes (Death, Life-Threatening)
  Sender: FDA-Public Use
  Company Number: SE-BAYER-200930640GPV

PATIENT
  Age: 16 Year
  Sex: Female
  Weight: 70 kg

DRUGS (1)
  1. YAZ [Suspect]
     Indication: CONTRACEPTION
     Route: 048
     Dates: start: 200811, end: 20090321

REACTIONS (15)
  - Pulmonary embolism [Fatal]
  - Chest pain [Fatal]
  - Dyspnoea [Fatal]
  - Palpitations [Fatal]
  - Nausea [Fatal]
  - Malaise [Fatal]
  - Pulmonary embolism [Fatal]
  - Neck pain [Fatal]
  - Back pain [Fatal]
  - Headache [None]
  - Dizziness [None]
  - Arthralgia [None]
  - Menstrual disorder [None]
  - Angina pectoris [Fatal]
  - Loss of consciousness [Fatal]
